FAERS Safety Report 7065749-3 (Version None)
Quarter: 2010Q4

REPORT INFORMATION
  Report Type: 
  Country: None (occurrence: None)
  Receive Date: 20101027
  Receipt Date: 20101020
  Transmission Date: 20110411
  Serious: Yes (Death, Hospitalization)
  Sender: FDA-Public Use
  Company Number: PHHO2009FR13798

PATIENT
  Sex: Male

DRUGS (19)
  1. NEORAL [Suspect]
     Indication: SKIN CANCER
     Dosage: UNK
     Route: 048
     Dates: start: 20090423
  2. MYCOPHENOLATE MOFETIL [Suspect]
     Indication: SKIN CANCER
     Dosage: UNK
     Route: 048
  3. ASPEGIC 1000 [Concomitant]
  4. ATACAND [Concomitant]
  5. PYOSTACINE [Concomitant]
  6. DEBRIDAT [Concomitant]
  7. HYDROCORTISONE [Concomitant]
  8. IMOVANE [Concomitant]
  9. INIPOMP [Concomitant]
  10. TAMSULOSIN HCL [Concomitant]
  11. KAYEXALATE [Concomitant]
  12. LASIX [Concomitant]
  13. MAGNE-B6 [Concomitant]
  14. RENAGEL [Concomitant]
  15. SPECIAFOLDINE [Concomitant]
  16. TAHOR [Concomitant]
  17. VITAMIN B1 TAB [Concomitant]
  18. VITAMIN B6 [Concomitant]
  19. ZYLORIC [Concomitant]

REACTIONS (20)
  - ABDOMINAL PAIN [None]
  - ANURIA [None]
  - BUNDLE BRANCH BLOCK RIGHT [None]
  - DYSPNOEA [None]
  - ECCHYMOSIS [None]
  - ELECTROCARDIOGRAM T WAVE INVERSION [None]
  - HAEMODYNAMIC INSTABILITY [None]
  - HEPATIC FAILURE [None]
  - HYPOTENSION [None]
  - LACTIC ACIDOSIS [None]
  - MALAISE [None]
  - MIOSIS [None]
  - MULTI-ORGAN FAILURE [None]
  - PAIN IN EXTREMITY [None]
  - PLEURAL EFFUSION [None]
  - SEPTIC SHOCK [None]
  - SHOCK [None]
  - SKIN LESION [None]
  - STREPTOCOCCAL INFECTION [None]
  - VENTRICULAR EXTRASYSTOLES [None]
